FAERS Safety Report 10103116 (Version 1)
Quarter: 2014Q2

REPORT INFORMATION
  Report Type: Spontaneous
  Country: US (occurrence: US)
  Receive Date: 20140424
  Receipt Date: 20140424
  Transmission Date: 20141212
  Serious: Yes (Hospitalization)
  Sender: FDA-Public Use
  Company Number: US-GLAXOSMITHKLINE-A1070126A

PATIENT
  Age: 72 Year
  Sex: Female

DRUGS (11)
  1. ADVAIR [Suspect]
     Indication: BRONCHITIS CHRONIC
     Dosage: 1PUFF TWICE PER DAY
     Route: 055
     Dates: start: 2010
  2. SPIRIVA [Concomitant]
  3. DIOVAN [Concomitant]
  4. HYDROCHLOROTHIAZIDE [Concomitant]
  5. SOTALOL [Concomitant]
  6. PRILOSEC [Concomitant]
  7. MAGNESIUM [Concomitant]
  8. POTASSIUM [Concomitant]
  9. BAYER ASPIRIN [Concomitant]
  10. CALCIUM [Concomitant]
  11. MULTIVITAMIN [Concomitant]

REACTIONS (3)
  - Viral infection [Unknown]
  - Bronchitis [Unknown]
  - General physical health deterioration [Not Recovered/Not Resolved]
